FAERS Safety Report 9200997 (Version 1)
Quarter: 2013Q1

REPORT INFORMATION
  Report Type: Spontaneous
  Country: US (occurrence: None)
  Receive Date: 20130327
  Receipt Date: 20130327
  Transmission Date: 20140127
  Serious: No
  Sender: FDA-Public Use
  Company Number: 2013P1003505

PATIENT
  Age: 62 Year
  Sex: Female

DRUGS (4)
  1. INFUMORPH [Suspect]
     Indication: PAIN
     Route: 037
     Dates: start: 20121001
  2. INFUMORPH [Suspect]
     Indication: PAIN
     Route: 037
     Dates: start: 20121001
  3. INFUMORPH [Suspect]
     Indication: PAIN IN EXTREMITY
     Route: 037
     Dates: start: 20121001
  4. INFUMORPH [Suspect]
     Indication: CHEST PAIN
     Route: 037
     Dates: start: 20121001

REACTIONS (2)
  - Device ineffective [None]
  - Device dislocation [None]
